FAERS Safety Report 9822110 (Version 1)
Quarter: 2014Q1

REPORT INFORMATION
  Report Type: Spontaneous
  Country: US (occurrence: US)
  Receive Date: 20140116
  Receipt Date: 20140116
  Transmission Date: 20141002
  Serious: Yes (Death, Hospitalization, Other)
  Sender: FDA-Public Use
  Company Number: US-PFIZER INC-2014013477

PATIENT
  Age: 58 Year
  Sex: Male

DRUGS (1)
  1. LYRICA [Suspect]
     Indication: DIABETIC NEUROPATHY
     Dosage: UNK, 1X/DAY
     Dates: start: 201210

REACTIONS (9)
  - Death [Fatal]
  - Influenza like illness [Unknown]
  - Dyspnoea [Unknown]
  - Pneumonia [Unknown]
  - Lung infection [Unknown]
  - H1N1 influenza [Unknown]
  - Oxygen saturation abnormal [Unknown]
  - Blood glucose fluctuation [Unknown]
  - Malaise [Unknown]
